FAERS Safety Report 4653806-8 (Version None)
Quarter: 2005Q2

REPORT INFORMATION
  Report Type: 
  Country: None (occurrence: None)
  Receive Date: 20050504
  Receipt Date: 20050421
  Transmission Date: 20051028
  Serious: Yes (Hospitalization)
  Sender: FDA-Public Use
  Company Number: KII-2005-0016305

PATIENT
  Age: 12 Month
  Sex: Male
  Weight: 13.8 kg

DRUGS (2)
  1. OXYCONTIN [Suspect]
     Indication: DRUG USE FOR UNKNOWN INDICATION
     Dosage: ORAL
     Route: 048
  2. GABAPENTIN [Suspect]
     Indication: DRUG USE FOR UNKNOWN INDICATION
     Dosage: ORAL
     Route: 048

REACTIONS (9)
  - ACCIDENTAL EXPOSURE [None]
  - AGITATION [None]
  - ASPIRATION [None]
  - COUGH [None]
  - LETHARGY [None]
  - MIOSIS [None]
  - OXYGEN SATURATION DECREASED [None]
  - RHONCHI [None]
  - VOMITING [None]
